FAERS Safety Report 7396602-3 (Version None)
Quarter: 2011Q1

REPORT INFORMATION
  Report Type: 
  Country: None (occurrence: None)
  Receive Date: 20110331
  Receipt Date: 20110331
  Transmission Date: 20110831
  Serious: Yes (Life-Threatening, Hospitalization, Other)
  Sender: FDA-Public Use
  Company Number: None

PATIENT
  Age: 30 Year
  Sex: Female
  Weight: 60.3284 kg

DRUGS (1)
  1. ZOLOFT [Suspect]

REACTIONS (3)
  - REFUSAL OF TREATMENT BY PATIENT [None]
  - OVERDOSE [None]
  - HEART RATE INCREASED [None]
